FAERS Safety Report 4980018-0 (Version None)
Quarter: 2006Q2

REPORT INFORMATION
  Report Type: 
  Country: None (occurrence: None)
  Receive Date: 20060421
  Receipt Date: 20060407
  Transmission Date: 20061013
  Serious: Yes (Hospitalization)
  Sender: FDA-Public Use
  Company Number: US-MERCK-0604USA01112

PATIENT
  Age: 61 Year
  Sex: Female

DRUGS (5)
  1. ZETIA [Suspect]
     Indication: BLOOD CHOLESTEROL
     Route: 048
     Dates: start: 20050101, end: 20050101
  2. ZETIA [Suspect]
     Route: 048
     Dates: start: 20050101, end: 20050101
  3. COZAAR [Concomitant]
     Route: 065
  4. PLAVIX [Concomitant]
     Route: 065
  5. LIPITOR [Concomitant]
     Route: 065

REACTIONS (4)
  - ABDOMINAL PAIN [None]
  - DEVICE FAILURE [None]
  - DRUG INEFFECTIVE [None]
  - STENT PLACEMENT [None]
